FAERS Safety Report 5669003-3 (Version None)
Quarter: 2008Q1

REPORT INFORMATION
  Report Type: 
  Country: None (occurrence: None)
  Receive Date: 20080317
  Receipt Date: 20080311
  Transmission Date: 20080703
  Serious: Yes (Death, Life-Threatening, Other)
  Sender: FDA-Public Use
  Company Number: DE-NOVOPROD-272789

PATIENT
  Sex: Male
  Weight: 0.35 kg

DRUGS (17)
  1. NOVOSEVEN [Suspect]
     Indication: HAEMORRHAGE
     Dosage: 1.2 MG, QD
     Route: 042
     Dates: start: 20080229, end: 20080229
  2. NATRIUMBIKARBONAT [Concomitant]
  3. COFFEIN CITRATE [Concomitant]
  4. PIRITRAMIDE [Concomitant]
  5. THIOPENTAL SODIUM [Concomitant]
  6. FRESH FROZEN PLASMA [Concomitant]
  7. RED BLOOD CELLS [Concomitant]
  8. PLATELETS, CONCENTRATED [Concomitant]
  9. VANCOMYCIN [Concomitant]
  10. FLUCONAZOLE [Concomitant]
  11. CUROSURF                           /01227201/ [Concomitant]
  12. ATROVENT [Concomitant]
  13. SULTANOL                           /00139501/ [Concomitant]
  14. METRONIDAZOL                       /00012501/ [Concomitant]
  15. FENTANYL [Concomitant]
  16. DORMICUM                           /00036201/ [Concomitant]
  17. IMIPENEM [Concomitant]

REACTIONS (5)
  - ANURIA [None]
  - CYANOSIS [None]
  - HYPOTENSION [None]
  - OVERDOSE [None]
  - OXYGEN SATURATION DECREASED [None]
